FAERS Safety Report 8203632-8 (Version None)
Quarter: 2012Q1

REPORT INFORMATION
  Report Type: 
  Country: None (occurrence: None)
  Receive Date: 20120313
  Receipt Date: 20120228
  Transmission Date: 20120608
  Serious: Yes (Hospitalization)
  Sender: FDA-Public Use
  Company Number: NO-AMGEN-NORSP2012013855

PATIENT
  Age: 15 Year
  Sex: Female

DRUGS (2)
  1. IBUPROFEN [Concomitant]
     Indication: JUVENILE ARTHRITIS
     Dosage: 600 MG, PRN
     Route: 048
  2. ENBREL [Suspect]
     Indication: JUVENILE ARTHRITIS
     Dosage: 50 MG, QWK
     Route: 058
     Dates: start: 20071101, end: 20120201

REACTIONS (2)
  - VISUAL ACUITY REDUCED [None]
  - TUNNEL VISION [None]
